FAERS Safety Report 8487068-0 (Version None)
Quarter: 2012Q3

REPORT INFORMATION
  Report Type: 
  Country: None (occurrence: None)
  Receive Date: 20120704
  Receipt Date: 20120629
  Transmission Date: 20120928
  Serious: Yes (Other)
  Sender: FDA-Public Use
  Company Number: PHHY2012PY056776

PATIENT
  Sex: Female

DRUGS (2)
  1. IMATINIB MESYLATE [Suspect]
     Indication: CHRONIC MYELOID LEUKAEMIA
     Dosage: 400 MG, DAILY
     Route: 048
     Dates: start: 20101227
  2. IMATINIB MESYLATE [Suspect]
     Dosage: 300 MG, UNK
     Route: 048
     Dates: start: 20120409

REACTIONS (2)
  - RENAL IMPAIRMENT [None]
  - CARDIAC DISORDER [None]
